FAERS Safety Report 4274227-6 (Version None)
Quarter: 2004Q1

REPORT INFORMATION
  Report Type: 
  Country: None (occurrence: None)
  Receive Date: 20040115
  Receipt Date: 20040106
  Transmission Date: 20041129
  Serious: Yes (Hospitalization)
  Sender: FDA-Public Use
  Company Number: 2004-01-0229

PATIENT
  Age: 67 Year
  Sex: Female

DRUGS (1)
  1. INTRON A [Suspect]
     Indication: MALIGNANT MELANOMA
     Dosage: 20 MIU TIW
     Dates: start: 20031125, end: 20030101

REACTIONS (6)
  - GOUT [None]
  - GROIN INFECTION [None]
  - JOINT EFFUSION [None]
  - NAUSEA [None]
  - SEPSIS [None]
  - WEIGHT DECREASED [None]
